FAERS Safety Report 10485552 (Version 4)
Quarter: 2015Q2

REPORT INFORMATION
  Report Type: Spontaneous
  Country: GB (occurrence: GB)
  Receive Date: 20140930
  Receipt Date: 20150622
  Transmission Date: 20150821
  Serious: Yes (Death)
  Sender: FDA-Public Use
  Company Number: PHHY2014GB124771

PATIENT

DRUGS (9)
  1. DIHYDROCODEINE BITARTRATE [Suspect]
     Active Substance: DIHYDROCODEINE BITARTRATE
     Indication: PRODUCT USED FOR UNKNOWN INDICATION
     Route: 065
  2. TEMAZEPAM. [Concomitant]
     Active Substance: TEMAZEPAM
     Indication: PRODUCT USED FOR UNKNOWN INDICATION
     Route: 065
  3. NORDIAZEPAM [Suspect]
     Active Substance: NORDAZEPAM
     Indication: PRODUCT USED FOR UNKNOWN INDICATION
     Route: 065
  4. DIAZEPAM. [Suspect]
     Active Substance: DIAZEPAM
     Indication: PRODUCT USED FOR UNKNOWN INDICATION
     Dosage: UNK
     Route: 065
  5. ALCOHOL. [Suspect]
     Active Substance: ALCOHOL
     Indication: PRODUCT USED FOR UNKNOWN INDICATION
     Route: 065
  6. BUPRENORPHINE [Suspect]
     Active Substance: BUPRENORPHINE
     Indication: PRODUCT USED FOR UNKNOWN INDICATION
     Route: 065
  7. AMPHETAMINE+DEXTROAMPHETAMINE [Suspect]
     Active Substance: AMPHETAMINE ADIPATE\DEXTROAMPHETAMINE
     Indication: PRODUCT USED FOR UNKNOWN INDICATION
     Route: 065
  8. AMPHETAMINE+DEXTROAMPHETAMINE [Suspect]
     Active Substance: AMPHETAMINE ADIPATE\DEXTROAMPHETAMINE
     Route: 065
  9. AMPHETAMINE+DEXTROAMPHETAMINE [Suspect]
     Active Substance: AMPHETAMINE ADIPATE\DEXTROAMPHETAMINE
     Route: 065

REACTIONS (4)
  - Intentional product misuse [Fatal]
  - Aspiration [Fatal]
  - Drug diversion [Unknown]
  - Substance abuse [Fatal]
